FAERS Safety Report 10900078 (Version 1)
Quarter: 2015Q1

REPORT INFORMATION
  Report Type: Report from Study
  Country: US (occurrence: US)
  Receive Date: 20150310
  Receipt Date: 20150310
  Transmission Date: 20150721
  Serious: Yes (Other)
  Sender: FDA-Public Use
  Company Number: US-ROCHE-770881

PATIENT

DRUGS (3)
  1. RITUXIMAB [Suspect]
     Active Substance: RITUXIMAB
     Indication: DIFFUSE LARGE B-CELL LYMPHOMA
     Route: 042
  2. RITUXIMAB [Suspect]
     Active Substance: RITUXIMAB
     Dosage: MAINTENANCE THERAPY
     Route: 042
  3. IBRITUMOMAB TIUXETAN [Suspect]
     Active Substance: IBRITUMOMAB TIUXETAN
     Indication: DIFFUSE LARGE B-CELL LYMPHOMA
     Route: 065

REACTIONS (13)
  - Myelodysplastic syndrome [Unknown]
  - Neutropenia [Unknown]
  - Fatigue [Unknown]
  - Deep vein thrombosis [Unknown]
  - Acute kidney injury [Unknown]
  - Arachnoiditis [Unknown]
  - Acute myeloid leukaemia [Unknown]
  - Abdominal pain [Unknown]
  - Extravasation [Unknown]
  - Hypophosphataemia [Unknown]
  - Thrombocytopenia [Unknown]
  - Febrile neutropenia [Unknown]
  - Pneumonia [Unknown]
